FAERS Safety Report 10581437 (Version 4)
Quarter: 2015Q2

REPORT INFORMATION
  Report Type: Spontaneous
  Country: US (occurrence: None)
  Receive Date: 20141110
  Receipt Date: 20150401
  Transmission Date: 20150821
  Serious: Yes (Hospitalization, Other)
  Sender: FDA-Public Use
  Company Number: ADR-2014-02058

PATIENT
  Age: 43 Year
  Sex: Male

DRUGS (4)
  1. BUPIVACAINE INTRATHECAL [Suspect]
     Active Substance: BUPIVACAINE
     Dosage: 11.263 MG/DAY
  2. CLONIDINE. [Suspect]
     Active Substance: CLONIDINE
     Dosage: 300.36 MCG/DAY
  3. DILAUDID [Suspect]
     Active Substance: HYDROMORPHONE HYDROCHLORIDE
     Dosage: 1.5018 MG/DAY
  4. COMPOUNDED BACLOFEN INTRATHECAL 400 MCG/ML [Suspect]
     Active Substance: BACLOFEN
     Indication: PAIN
     Dosage: 150.18 MCG/DAY

REACTIONS (10)
  - Device damage [None]
  - Incision site infection [None]
  - Incision site erythema [None]
  - Bacterial infection [None]
  - Bacterial test positive [None]
  - Incision site pain [None]
  - Incision site swelling [None]
  - Implant site infection [None]
  - General physical health deterioration [None]
  - Product container seal issue [None]

NARRATIVE: CASE EVENT DATE: 20141013
